FAERS Safety Report 15818648 (Version 20)
Quarter: 2023Q2

REPORT INFORMATION
  Report Type: Spontaneous
  Country: DE (occurrence: DE)
  Receive Date: 20190113
  Receipt Date: 20230427
  Transmission Date: 20230722
  Serious: Yes (Hospitalization, Other)
  Sender: FDA-Public Use
  Company Number: PHHY2019DE005383

PATIENT
  Sex: Female
  Weight: 78 kg

DRUGS (77)
  1. VALSARTAN [Suspect]
     Active Substance: VALSARTAN
     Indication: Essential hypertension
     Dosage: 80 MG, QD (MORNING)
     Route: 048
     Dates: start: 20140926, end: 201806
  2. VALSARTAN [Suspect]
     Active Substance: VALSARTAN
     Dosage: 80 MG
     Route: 065
     Dates: start: 20141211
  3. VALSARTAN [Suspect]
     Active Substance: VALSARTAN
     Dosage: 80 MG, QD
     Route: 065
     Dates: start: 201412, end: 20180707
  4. VALSARTAN [Suspect]
     Active Substance: VALSARTAN
     Dosage: 80 MG, QD
     Route: 065
     Dates: start: 201510, end: 201807
  5. VALSARTAN [Suspect]
     Active Substance: VALSARTAN
     Dosage: 1 DOSAGE FORM, QD (MORNING)
     Route: 048
     Dates: start: 201601, end: 201807
  6. VALSARTAN [Suspect]
     Active Substance: VALSARTAN
     Dosage: 80 MG
     Route: 065
     Dates: start: 20180412, end: 201807
  7. MOXIFLOXACIN HYDROCHLORIDE [Suspect]
     Active Substance: MOXIFLOXACIN HYDROCHLORIDE
     Indication: Infection
     Dosage: 400 MG
     Route: 065
     Dates: start: 201508, end: 201508
  8. IODINE [Concomitant]
     Active Substance: IODINE
     Indication: Thyroid therapy
     Dosage: 0.5 DOSAGE FORM, QD (MORNING) (HALF A TABLET 200 ?G)
     Route: 065
  9. IODINE [Concomitant]
     Active Substance: IODINE
     Dosage: 200 DOSAGE FORM, QD ((?G)(1X, PER DAY)
     Route: 065
  10. IODINE [Concomitant]
     Active Substance: IODINE
     Dosage: 200 UG, HALF A TABLET 200 ?G
     Route: 048
  11. IODINE [Concomitant]
     Active Substance: IODINE
     Dosage: 200 UG
     Route: 048
     Dates: start: 20180502
  12. IODINE [Concomitant]
     Active Substance: IODINE
     Dosage: 200 UG, QD, 1X, PER DAY (MORNING, 1-0-0-0, 8 AM)
     Route: 048
     Dates: start: 20180523, end: 20180524
  13. FOSTER [Concomitant]
     Active Substance: BECLOMETHASONE\FORMOTEROL
     Indication: Asthma
     Dosage: 200 MG, QD
     Route: 065
  14. FOSTER [Concomitant]
     Active Substance: BECLOMETHASONE\FORMOTEROL
     Dosage: UNK, QD
     Route: 065
  15. FOSTER [Concomitant]
     Active Substance: BECLOMETHASONE\FORMOTEROL
     Dosage: 1X 100/6?G, PULMONAL, 1 PUFF ,DAILY (MORNING)
     Route: 065
     Dates: start: 20180502
  16. FOSTER [Concomitant]
     Active Substance: BECLOMETHASONE\FORMOTEROL
     Dosage: 2X 100/6?G, PULMONAL
     Route: 065
     Dates: start: 20180526
  17. FOSTER [Concomitant]
     Active Substance: BECLOMETHASONE\FORMOTEROL
     Dosage: AS NEEDED, PULMONAL
     Route: 065
  18. PANTOZOL [Concomitant]
     Active Substance: PANTOPRAZOLE SODIUM
     Indication: Product used for unknown indication
     Dosage: 40 MG, BID (MORNING AND EVENING)
     Route: 048
  19. PANTOZOL [Concomitant]
     Active Substance: PANTOPRAZOLE SODIUM
     Dosage: 40 MG, QD (AS NEEDED)
     Route: 048
  20. PANTOZOL [Concomitant]
     Active Substance: PANTOPRAZOLE SODIUM
     Dosage: 20 MG, QD (MORNING)
     Route: 065
  21. CHOLECALCIFEROL [Concomitant]
     Active Substance: CHOLECALCIFEROL
     Indication: Product used for unknown indication
     Dosage: 20000 IU, EVERY 14 DAYS (1X 20.000 I.U, CAPSULES/ORAL SOLUTIONS IN THE MORNING)
     Route: 065
     Dates: start: 20200628
  22. CHOLECALCIFEROL [Concomitant]
     Active Substance: CHOLECALCIFEROL
     Dosage: 20 IU, QD, ONCE DAILY IN THE MORNING
     Route: 048
     Dates: start: 20180502
  23. CHOLECALCIFEROL [Concomitant]
     Active Substance: CHOLECALCIFEROL
     Dosage: 20 IU, QD, ONCE DAILY IN THE MORNING
     Route: 048
     Dates: start: 20180523, end: 20180531
  24. CHOLECALCIFEROL [Concomitant]
     Active Substance: CHOLECALCIFEROL
     Dosage: 20 IU, EVERY 14 DAYS IN THE MORNING (1-0-0-0)
     Route: 065
     Dates: start: 20200628
  25. CHOLECALCIFEROL [Concomitant]
     Active Substance: CHOLECALCIFEROL
     Dosage: 20.0 IU, PER WEEK
     Route: 065
  26. DIOVAN [Concomitant]
     Active Substance: VALSARTAN
     Indication: Hypertension
     Dosage: 80 MG, QD (ONE IN THE MORNING AND ONE IN THE EVENING)
     Route: 065
  27. DIOVAN [Concomitant]
     Active Substance: VALSARTAN
     Dosage: 80 MG, QD
     Route: 065
  28. DIOVAN [Concomitant]
     Active Substance: VALSARTAN
     Dosage: 80 MG, ONCE DAILY IN THE MORNING (1-0-0-0)
     Route: 048
     Dates: start: 20180502
  29. DIOVAN [Concomitant]
     Active Substance: VALSARTAN
     Dosage: 80 MG, ONE IN THE MORNING AND ONE IN THE EVENING
     Route: 065
  30. RIOPAN [Concomitant]
     Indication: Product used for unknown indication
     Dosage: UNK UNK, PRN
     Route: 065
  31. RIOPAN [Concomitant]
     Dosage: UNK, PRN
     Route: 065
  32. FORMOTEROL [Concomitant]
     Active Substance: FORMOTEROL
     Indication: Asthma
     Dosage: 1X100/6MG, 1 PUFF DAILY
     Route: 065
  33. POLYETHYLENE GLYCOL 3350\POTASSIUM CHLORIDE\SODIUM BICARBONATE\SODIUM [Concomitant]
     Active Substance: POLYETHYLENE GLYCOL 3350\POTASSIUM CHLORIDE\SODIUM BICARBONATE\SODIUM CHLORIDE
     Indication: Product used for unknown indication
     Dosage: 1 DOSAGE FORM, QD (MORNING)
     Route: 065
  34. BUTYLSCOPOLAMINE BROMIDE [Concomitant]
     Active Substance: BUTYLSCOPOLAMINE BROMIDE
     Indication: Product used for unknown indication
     Dosage: 1 DOSAGE FORM (MAX 2 DOSAGE FORM) (DRAGEE)
     Route: 065
  35. HYDROCHLOROTHIAZIDE\VALSARTAN [Concomitant]
     Active Substance: HYDROCHLOROTHIAZIDE\VALSARTAN
     Indication: Product used for unknown indication
     Dosage: UNK
     Route: 065
  36. KALIUM-MAGNESIUM [Concomitant]
     Indication: Product used for unknown indication
     Dosage: UNK (1 IN THE MORNING, 2 AT NOON)
     Route: 065
  37. MAGNESIUM [Concomitant]
     Active Substance: MAGNESIUM
     Indication: Product used for unknown indication
     Dosage: UNK, (400), EVERY SECOND DAY, IN THE MORNING
     Route: 065
  38. POTASSIUM IODIDE [Concomitant]
     Active Substance: POTASSIUM IODIDE
     Indication: Product used for unknown indication
     Dosage: 0.2 MG, QD (200 HEXAL) IN THE MORNING
     Route: 065
  39. BECLOMETHASONE DIPROPIONATE [Concomitant]
     Active Substance: BECLOMETHASONE DIPROPIONATE
     Indication: Asthma
     Dosage: 1X100/6MG, 1 PUFF DAILY
     Route: 065
  40. LATANOPROST [Concomitant]
     Active Substance: LATANOPROST
     Indication: Glaucoma
     Dosage: UNK, QD (0.01 MG/0.2 ML) IN THE EVENING, EVERY EYE
     Route: 065
  41. LATANOPROST [Concomitant]
     Active Substance: LATANOPROST
     Dosage: UNK
     Route: 065
  42. LATANOPROST [Concomitant]
     Active Substance: LATANOPROST
     Dosage: 1 DRP, IN THE EVENINGS, PER EYE
     Route: 057
  43. LATANOPROST [Concomitant]
     Active Substance: LATANOPROST
     Dosage: 1 DRP, IN THE MORNINGS, LEFT AND REIGHT
     Route: 057
  44. LATANOPROST [Concomitant]
     Active Substance: LATANOPROST
     Dosage: 1 DRP, ONE DROP IN EVERY EYE IN THE EVENING (0-0-1)
     Route: 065
  45. FONDAPARINUX [Concomitant]
     Active Substance: FONDAPARINUX
     Indication: Thrombosis prophylaxis
     Dosage: 2.5 MG, QD
     Route: 058
  46. MAGNESIUM CARBONATE;POTASSIUM [Concomitant]
     Indication: Product used for unknown indication
     Dosage: UNK (1 PER DAY, MORMING)
     Route: 065
  47. PANTOPRAZOLE SODIUM [Concomitant]
     Active Substance: PANTOPRAZOLE SODIUM
     Indication: Asthma
     Dosage: 20 MG, QD (1 DAILY, MORNING)
     Route: 065
  48. PANTOPRAZOLE SODIUM [Concomitant]
     Active Substance: PANTOPRAZOLE SODIUM
     Dosage: 40 MG, QD
     Route: 065
  49. PANTOPRAZOLE SODIUM [Concomitant]
     Active Substance: PANTOPRAZOLE SODIUM
     Dosage: 20 MG
     Route: 048
  50. DORZOVISION [Concomitant]
     Indication: Product used for unknown indication
     Dosage: UNK, BID
     Route: 065
  51. DORZOVISION [Concomitant]
     Dosage: UNK, QD (MORNING)
     Route: 065
  52. MAGNESIUM CHLORIDE;POTASSIUM;POTASS [Concomitant]
     Indication: Product used for unknown indication
     Dosage: UNK, QD
     Route: 065
  53. XANAFLU [Concomitant]
     Active Substance: INFLUENZA VIRUS VACCINE
     Indication: Product used for unknown indication
     Dosage: UNK
     Route: 065
     Dates: start: 20171114, end: 20171114
  54. POTASSIUM IODIDE [Concomitant]
     Active Substance: POTASSIUM IODIDE
     Indication: Thyroid therapy
     Dosage: 200 UG, ? IN THE MORNING (1/2-0-0-0)
     Route: 048
     Dates: start: 20180524
  55. ARIXTRA [Concomitant]
     Active Substance: FONDAPARINUX SODIUM
     Indication: Product used for unknown indication
     Dosage: 2.5 MG, QD, IN THE EVENING, EVERY DAY
     Route: 058
  56. HUMATIN [Concomitant]
     Active Substance: PAROMOMYCIN SULFATE
     Indication: Product used for unknown indication
     Dosage: 8 G, ONCE IN THE EVENING (9 PM), DISSOLVED IN THE GLASS OF WATER
     Route: 048
     Dates: start: 20180524, end: 20180524
  57. SALINE [Concomitant]
     Active Substance: SODIUM CHLORIDE
     Indication: Product used for unknown indication
     Dosage: 100 ML
     Route: 042
     Dates: start: 20180528
  58. SALINE [Concomitant]
     Active Substance: SODIUM CHLORIDE
     Dosage: 100 ML
     Route: 042
     Dates: start: 20180601
  59. GRANISETRON HYDROCHLORIDE [Concomitant]
     Active Substance: GRANISETRON HYDROCHLORIDE
     Indication: Product used for unknown indication
     Dosage: 1MG/1ML
     Route: 042
     Dates: start: 20180528
  60. ACETAMINOPHEN [Concomitant]
     Active Substance: ACETAMINOPHEN
     Indication: Product used for unknown indication
     Dosage: 500 MG, AS NEEDED
     Route: 048
     Dates: start: 20180602
  61. SULTANOL [Concomitant]
     Active Substance: ALBUTEROL SULFATE
     Indication: Pneumonia
     Dosage: UNK
     Route: 065
  62. ATROVENT [Concomitant]
     Active Substance: IPRATROPIUM BROMIDE
     Indication: Pneumonia
     Dosage: UNK
     Route: 065
  63. FUROSEMIDE [Concomitant]
     Active Substance: FUROSEMIDE
     Indication: Product used for unknown indication
     Route: 065
  64. SODIUM CHLORIDE [Concomitant]
     Active Substance: SODIUM CHLORIDE
     Indication: Product used for unknown indication
     Dosage: UNK
     Dates: start: 201805
  65. VOLTAREN [Concomitant]
     Active Substance: DICLOFENAC SODIUM
     Indication: Product used for unknown indication
     Route: 065
  66. HEPATHROMBIN [Concomitant]
     Indication: Product used for unknown indication
     Dosage: UNK
     Route: 065
  67. RINGER ACETAT [Concomitant]
     Indication: Product used for unknown indication
     Dosage: 1000 ML
     Route: 065
     Dates: start: 20180525, end: 20180531
  68. NALOXONE HYDROCHLORIDE\OXYCODONE HYDROCHLORIDE [Concomitant]
     Active Substance: NALOXONE HYDROCHLORIDE\OXYCODONE HYDROCHLORIDE
     Indication: Product used for unknown indication
     Dosage: 1 DOSAGE FORM, 1X 10 MG / 10/5 MG, ONCE IN THE MORNING, ONCE IN THE EVENING (8 AM, 5/8 PM)
     Route: 048
     Dates: start: 20180526, end: 20180528
  69. METAMIZOLE [Concomitant]
     Active Substance: METAMIZOLE
     Indication: Product used for unknown indication
     Dosage: 1 DOSAGE FORM, QD, IN THE MORNING, IN THE AFTERNOON, IN THE EVENING, AT NIGHT (8 AM, 2 PM, 8 PM, 2 A
     Route: 042
     Dates: start: 20180525
  70. METAMIZOLE [Concomitant]
     Active Substance: METAMIZOLE
     Dosage: 1 DOSAGE FORM, 1G/2MG QD, IN THE MORNING, AT NOON, IN THE AFTERNOON, IN THE EVENING (8 AM, 12 AM, 5
     Route: 042
     Dates: start: 20180526, end: 20180529
  71. METAMIZOLE [Concomitant]
     Active Substance: METAMIZOLE
     Dosage: 500 MG, TWICE IN THE MORNING, TWICE AT NOON, TWICE IN THE AFTERNOON, TWICE IN THE EVENING (8 AM, 12
     Route: 048
     Dates: start: 20180529, end: 20180601
  72. PIRITRAMIDE [Concomitant]
     Active Substance: PIRITRAMIDE
     Indication: Product used for unknown indication
     Dosage: UNK, AS NEEDED
     Route: 058
     Dates: start: 201805
  73. HYDROMORPHONE [Concomitant]
     Active Substance: HYDROMORPHONE
     Indication: Product used for unknown indication
     Dosage: 1.3 MG, BID, PRO RE NATA / AS NEEDED
     Route: 048
  74. HYDROMORPHONE [Concomitant]
     Active Substance: HYDROMORPHONE
     Dosage: 1.3 MG
     Route: 048
     Dates: start: 20180526
  75. NOVALGIN [Concomitant]
     Indication: Analgesic therapy
     Dosage: UNK
     Route: 042
     Dates: start: 201805
  76. NOVALGIN [Concomitant]
     Dosage: 1 MG, 4X
     Route: 065
  77. LIDOCAINE [Concomitant]
     Active Substance: LIDOCAINE
     Indication: Analgesic therapy
     Dosage: UNK, ACCORDING TO SCHEME
     Route: 042

REACTIONS (117)
  - Adenocarcinoma [Recovered/Resolved]
  - Faeces discoloured [Unknown]
  - Chromaturia [Unknown]
  - Vomiting [Unknown]
  - Mucosal haemorrhage [Unknown]
  - Dehydration [Unknown]
  - Diarrhoea [Unknown]
  - Nasopharyngitis [Unknown]
  - Nasopharyngitis [Recovered/Resolved]
  - Jaundice cholestatic [Unknown]
  - Obstructive pancreatitis [Recovered/Resolved]
  - Nephritis [Unknown]
  - General physical health deterioration [Unknown]
  - Colon cancer [Recovered/Resolved]
  - Colon neoplasm [Unknown]
  - Change of bowel habit [Unknown]
  - Foot deformity [Unknown]
  - Exostosis [Recovering/Resolving]
  - Nausea [Unknown]
  - Abdominal pain upper [Unknown]
  - Arrhythmia [Unknown]
  - Macular degeneration [Unknown]
  - Sinus node dysfunction [Unknown]
  - Myocardial ischaemia [Unknown]
  - Respiratory tract infection [Unknown]
  - Large intestine polyp [Recovered/Resolved]
  - Gastritis erosive [Unknown]
  - Gastric mucosa erythema [Unknown]
  - Appendicitis [Unknown]
  - Renal atrophy [Unknown]
  - Cauda equina syndrome [Unknown]
  - Osteoarthritis [Unknown]
  - Joint destruction [Unknown]
  - Colon cancer [Unknown]
  - Cardiac failure [Unknown]
  - Angina pectoris [Unknown]
  - Asthenia [Unknown]
  - Urinary tract infection [Unknown]
  - Sinus bradycardia [Unknown]
  - Cystitis [Recovering/Resolving]
  - Tubulointerstitial nephritis [Recovering/Resolving]
  - Angioedema [Unknown]
  - Pyelonephritis [Recovering/Resolving]
  - Glaucoma [Unknown]
  - Sensory disturbance [Unknown]
  - Haemorrhoids [Unknown]
  - Hiatus hernia [Unknown]
  - Diverticulum intestinal [Unknown]
  - Cardiomegaly [Unknown]
  - Weight decreased [Unknown]
  - Renal cyst [Unknown]
  - Allergy to metals [Unknown]
  - Chest discomfort [Unknown]
  - Anal haemorrhage [Unknown]
  - Anal skin tags [Unknown]
  - Anaemia [Unknown]
  - Dyschezia [Recovering/Resolving]
  - Tendonitis [Unknown]
  - Fall [Unknown]
  - Muscle atrophy [Unknown]
  - Sciatica [Unknown]
  - Hyperuricaemia [Unknown]
  - Flatulence [Unknown]
  - Tinnitus [Unknown]
  - Leukocytosis [Unknown]
  - Iron deficiency anaemia [Unknown]
  - Lymphoedema [Unknown]
  - Enzyme level abnormal [Unknown]
  - Enthesopathy [Unknown]
  - Goitre [Unknown]
  - Dyspnoea exertional [Unknown]
  - Aortic dilatation [Unknown]
  - Spinal osteoarthritis [Unknown]
  - Thoracic outlet syndrome [Unknown]
  - Colorectal adenoma [Unknown]
  - Dysplasia [Unknown]
  - Hypercholesterolaemia [Unknown]
  - Oedema [Unknown]
  - Chronic gastritis [Unknown]
  - Blood creatinine increased [Unknown]
  - Spinal disorder [Unknown]
  - Hyperkinesia [Unknown]
  - Bowel movement irregularity [Unknown]
  - Food intolerance [Unknown]
  - Gamma-glutamyltransferase increased [Unknown]
  - Cough [Unknown]
  - Swelling face [Unknown]
  - Fluid retention [Unknown]
  - Mobility decreased [Unknown]
  - Visual impairment [Unknown]
  - Night sweats [Unknown]
  - Lymphadenitis [Unknown]
  - Thyroid disorder [Unknown]
  - Immobilisation syndrome [Unknown]
  - Wheezing [Unknown]
  - Raynaud^s phenomenon [Unknown]
  - Joint effusion [Unknown]
  - Haemorrhoidal haemorrhage [Unknown]
  - Aggression [Unknown]
  - Vaginal infection [Unknown]
  - Vulvovaginal inflammation [Unknown]
  - Eye pain [Unknown]
  - Plantar fasciitis [Recovering/Resolving]
  - Sinusitis [Recovering/Resolving]
  - Microangiopathy [Unknown]
  - Peripheral swelling [Unknown]
  - Hyposmia [Unknown]
  - Oedema peripheral [Unknown]
  - Dyspepsia [Unknown]
  - Abdominal pain [Unknown]
  - Oropharyngeal pain [Unknown]
  - Abdominal pain lower [Unknown]
  - Product contamination [Unknown]
  - Dysphagia [Unknown]
  - Pain [Unknown]
  - Rash [Unknown]
  - Arthralgia [Unknown]

NARRATIVE: CASE EVENT DATE: 20141211
